FAERS Safety Report 4967405-1 (Version None)
Quarter: 2006Q2

REPORT INFORMATION
  Report Type: 
  Country: None (occurrence: None)
  Receive Date: 20060407
  Receipt Date: 20060407
  Transmission Date: 20061013
  Serious: Yes (Other)
  Sender: FDA-Public Use
  Company Number: None

PATIENT
  Sex: Female

DRUGS (3)
  1. LEVAQUIN [Suspect]
     Indication: PHARYNGITIS
     Dosage: 500 MG ONE PO QD PO
     Route: 048
     Dates: start: 20060320, end: 20060328
  2. MEDROL [Concomitant]
  3. CETIRIZINE HCL AND PSEUDOEPHEDRINE HCL [Concomitant]

REACTIONS (1)
  - PALPITATIONS [None]
